FAERS Safety Report 4404127-X (Version None)
Quarter: 2004Q3

REPORT INFORMATION
  Report Type: 
  Country: None (occurrence: None)
  Receive Date: 20040721
  Receipt Date: 20040721
  Transmission Date: 20050211
  Serious: Yes (Hospitalization)
  Sender: FDA-Public Use
  Company Number: None

PATIENT
  Age: 62 Year
  Sex: Male

DRUGS (11)
  1. CASODEX [Suspect]
     Indication: PROSTATE CANCER
     Dates: start: 20021015, end: 20040828
  2. ZOLADEX [Suspect]
     Dates: start: 20021015, end: 20041028
  3. DIALYVITE [Concomitant]
  4. DOXAZOSIN [Concomitant]
  5. GATIFLOXACIN [Concomitant]
  6. GLIPIZIDE [Concomitant]
  7. GLUCOSE [Concomitant]
  8. INSULIN [Concomitant]
  9. GLASGINE [Concomitant]
  10. LORAZEPAM [Concomitant]
  11. LORTAB [Concomitant]

REACTIONS (5)
  - BLOOD CREATININE INCREASED [None]
  - DIABETES MELLITUS NON-INSULIN-DEPENDENT [None]
  - DYSPHAGIA [None]
  - HYPEROSMOLAR STATE [None]
  - MENTAL STATUS CHANGES [None]
